FAERS Safety Report 15479404 (Version 1)
Quarter: 2018Q4

REPORT INFORMATION
  Report Type: Spontaneous
  Country: GB (occurrence: GB)
  Receive Date: 20181009
  Receipt Date: 20181009
  Transmission Date: 20190205
  Serious: Yes (Life-Threatening, Hospitalization, Other)
  Sender: FDA-Public Use
  Company Number: GB-LINDE-GB-LHC-2018227

PATIENT
  Sex: Male

DRUGS (1)
  1. LIQUID MEDICAL OXYGEN [Suspect]
     Active Substance: OXYGEN
     Indication: PRODUCT USED FOR UNKNOWN INDICATION
     Route: 055

REACTIONS (5)
  - Oxygen saturation decreased [Recovering/Resolving]
  - Body temperature decreased [Recovering/Resolving]
  - Device issue [Recovering/Resolving]
  - Accidental underdose [Recovering/Resolving]
  - Respiratory failure [Recovering/Resolving]

NARRATIVE: CASE EVENT DATE: 20180909
